FAERS Safety Report 5018130-2 (Version None)
Quarter: 2006Q2

REPORT INFORMATION
  Report Type: 
  Country: None (occurrence: None)
  Receive Date: 20060530
  Receipt Date: 20050128
  Transmission Date: 20061013
  Serious: Yes (Other)
  Sender: FDA-Public Use
  Company Number: 2005021990

PATIENT
  Age: 48 Year
  Sex: Female

DRUGS (2)
  1. LYRICA [Suspect]
     Indication: NEURALGIA
     Dosage: 150 MG (75 MG, 2 IN 2 D), ORAL
     Route: 048
     Dates: start: 20050107, end: 20050114
  2. CODEINE PHOSPHATE AND ACETAMINOPHEN [Concomitant]

REACTIONS (2)
  - EYE PAIN [None]
  - HYPOAESTHESIA FACIAL [None]
